FAERS Safety Report 17591481 (Version 1)
Quarter: 2020Q1

REPORT INFORMATION
  Report Type: Spontaneous
  Country: US (occurrence: US)
  Receive Date: 20200327
  Receipt Date: 20200327
  Transmission Date: 20200409
  Serious: No
  Sender: FDA-Public Use
  Company Number: US-ASTRAZENECA-2020SE32655

PATIENT
  Sex: Male

DRUGS (5)
  1. FLONASE [Concomitant]
     Active Substance: FLUTICASONE PROPIONATE
  2. TAGRISSO [Suspect]
     Active Substance: OSIMERTINIB
     Indication: NEOPLASM MALIGNANT
     Dosage: 80.0MG UNKNOWN
     Route: 048
  3. BENZONATATE. [Concomitant]
     Active Substance: BENZONATATE
  4. POPCID [Concomitant]
  5. VALUM [Concomitant]

REACTIONS (7)
  - Wheezing [Unknown]
  - Productive cough [Unknown]
  - Photosensitivity reaction [Unknown]
  - Chest pain [Unknown]
  - Acute sinusitis [Not Recovered/Not Resolved]
  - Dry throat [Unknown]
  - Gastrooesophageal reflux disease [Unknown]
